FAERS Safety Report 18363864 (Version 1)
Quarter: 2020Q4

REPORT INFORMATION
  Report Type: Spontaneous
  Country: US (occurrence: US)
  Receive Date: 20201008
  Receipt Date: 20201008
  Transmission Date: 20210114
  Serious: No
  Sender: FDA-Public Use
  Company Number: None

PATIENT
  Age: 39 Year
  Sex: Female

DRUGS (1)
  1. AFINITOR [Suspect]
     Active Substance: EVEROLIMUS
     Indication: RENAL LIPOMATOSIS
     Route: 048
     Dates: start: 202003, end: 20201007

REACTIONS (2)
  - Therapy change [None]
  - Therapeutic product effect decreased [None]

NARRATIVE: CASE EVENT DATE: 20200930
